FAERS Safety Report 23529152 (Version 2)
Quarter: 2024Q1

REPORT INFORMATION
  Report Type: Spontaneous
  Country: CA (occurrence: CA)
  Receive Date: 20240216
  Receipt Date: 20240223
  Transmission Date: 20240410
  Serious: Yes (Other)
  Sender: FDA-Public Use
  Company Number: CA-HALEON-CACH2024AMR007736

PATIENT

DRUGS (109)
  1. DICLOFENAC SODIUM [Suspect]
     Active Substance: DICLOFENAC\DICLOFENAC SODIUM
     Indication: Product used for unknown indication
     Dosage: UNK
     Route: 065
  2. ACETAMINOPHEN [Suspect]
     Active Substance: ACETAMINOPHEN
     Indication: Product used for unknown indication
     Dosage: UNK
     Route: 065
  3. DIPHENHYDRAMINE [Suspect]
     Active Substance: DIPHENHYDRAMINE
     Indication: Product used for unknown indication
     Dosage: 75 MG, QD (1 EVERY 1 DAYS)
     Route: 065
  4. DIPHENHYDRAMINE [Suspect]
     Active Substance: DIPHENHYDRAMINE
     Dosage: 75 MG (1 EVERY 1 DAYS)
     Route: 065
  5. DIPHENHYDRAMINE [Suspect]
     Active Substance: DIPHENHYDRAMINE
     Dosage: 75 MG, QD (1 EVERY 1 DAYS)
     Route: 065
  6. DIPHENHYDRAMINE [Suspect]
     Active Substance: DIPHENHYDRAMINE
     Dosage: 75 MG, QD
     Route: 065
  7. DIPHENHYDRAMINE [Suspect]
     Active Substance: DIPHENHYDRAMINE
     Dosage: 75 MG, QD (1 EVERY 1 DAYS)
     Route: 065
  8. DIPHENHYDRAMINE [Suspect]
     Active Substance: DIPHENHYDRAMINE
     Dosage: 75 MG, QD (1 EVERY 1 DAYS)
     Route: 065
  9. DIPHENHYDRAMINE [Suspect]
     Active Substance: DIPHENHYDRAMINE
     Dosage: 75 MG
     Route: 065
  10. DIPHENHYDRAMINE [Suspect]
     Active Substance: DIPHENHYDRAMINE
     Dosage: 75 MG
     Route: 065
  11. DIPHENHYDRAMINE [Suspect]
     Active Substance: DIPHENHYDRAMINE
     Dosage: 75 MG, QD (1 EVERY 1 DAYS)
     Route: 065
  12. DIPHENHYDRAMINE [Suspect]
     Active Substance: DIPHENHYDRAMINE
     Dosage: 75 MG, QD (1 EVERY 1 DAYS)
     Route: 065
  13. FLUTICASONE PROPIONATE [Suspect]
     Active Substance: FLUTICASONE PROPIONATE
     Indication: Product used for unknown indication
     Dosage: 500 MG
     Route: 065
  14. FLUTICASONE PROPIONATE [Suspect]
     Active Substance: FLUTICASONE PROPIONATE
     Dosage: 500 MG, BID (500 MG, Q12H)
     Route: 065
  15. CETIRIZINE HYDROCHLORIDE [Suspect]
     Active Substance: CETIRIZINE HYDROCHLORIDE
     Indication: Product used for unknown indication
     Dosage: 20 MG, QD
     Route: 065
  16. CETIRIZINE HYDROCHLORIDE [Suspect]
     Active Substance: CETIRIZINE HYDROCHLORIDE
     Dosage: 20 MG, QD
     Route: 065
  17. CETIRIZINE HYDROCHLORIDE [Suspect]
     Active Substance: CETIRIZINE HYDROCHLORIDE
     Dosage: 20 MG, QD
     Route: 065
  18. CETIRIZINE HYDROCHLORIDE [Suspect]
     Active Substance: CETIRIZINE HYDROCHLORIDE
     Dosage: 20 MG, QD
     Route: 065
  19. CETIRIZINE HYDROCHLORIDE [Suspect]
     Active Substance: CETIRIZINE HYDROCHLORIDE
     Dosage: 20 MG, QD
     Route: 065
  20. CETIRIZINE HYDROCHLORIDE [Suspect]
     Active Substance: CETIRIZINE HYDROCHLORIDE
     Dosage: 20 MG, QD
     Route: 065
  21. CETIRIZINE HYDROCHLORIDE [Suspect]
     Active Substance: CETIRIZINE HYDROCHLORIDE
     Indication: Product used for unknown indication
     Dosage: 20 MG, QD
     Route: 065
  22. SENOKOT [Suspect]
     Active Substance: SENNOSIDES
     Indication: Product used for unknown indication
     Dosage: UNK
     Route: 065
  23. VITAMIN C [Suspect]
     Active Substance: ASCORBIC ACID
     Indication: Product used for unknown indication
     Dosage: UNK
     Route: 065
  24. ABACAVIR SULFATE [Suspect]
     Active Substance: ABACAVIR SULFATE
     Indication: Product used for unknown indication
     Dosage: UNK
     Route: 065
  25. ACTEMRA [Suspect]
     Active Substance: TOCILIZUMAB
     Indication: Rheumatoid arthritis
     Dosage: 500 MG, BID (500 MG, Q12H)
     Route: 065
  26. ACTEMRA [Suspect]
     Active Substance: TOCILIZUMAB
     Dosage: 500 MG (1 EVERY 12 HOURS)
     Route: 058
  27. ACTEMRA [Suspect]
     Active Substance: TOCILIZUMAB
     Dosage: 500 MG, QD (1 EVERY 1 DAYS)
     Route: 065
  28. ACTEMRA [Suspect]
     Active Substance: TOCILIZUMAB
     Dosage: 500 MG, BID (1 EVERY 12 HOURS)
     Route: 065
  29. ACTEMRA [Suspect]
     Active Substance: TOCILIZUMAB
     Dosage: 500 MG, QD
     Route: 065
  30. ACTEMRA [Suspect]
     Active Substance: TOCILIZUMAB
     Dosage: 500 MG, QD
     Route: 065
  31. ACTEMRA [Suspect]
     Active Substance: TOCILIZUMAB
     Dosage: 1000 MG
     Route: 065
  32. ACTEMRA [Suspect]
     Active Substance: TOCILIZUMAB
     Dosage: 100 MG, QD
     Route: 065
  33. ACTEMRA [Suspect]
     Active Substance: TOCILIZUMAB
     Dosage: 500 MG, QD
     Route: 065
  34. ACTEMRA [Suspect]
     Active Substance: TOCILIZUMAB
     Dosage: 500 MG, QD
     Route: 065
  35. ADVAIR HFA [Suspect]
     Active Substance: FLUTICASONE PROPIONATE\SALMETEROL XINAFOATE
     Indication: Product used for unknown indication
     Dosage: 500 MG (1 EVERY 12 HOURS)
     Route: 065
  36. ADVAIR HFA [Suspect]
     Active Substance: FLUTICASONE PROPIONATE\SALMETEROL XINAFOATE
     Dosage: 500 MG, QD
     Route: 065
  37. ADVAIR HFA [Suspect]
     Active Substance: FLUTICASONE PROPIONATE\SALMETEROL XINAFOATE
     Dosage: 500 MG
     Route: 065
  38. ADVAIR HFA [Suspect]
     Active Substance: FLUTICASONE PROPIONATE\SALMETEROL XINAFOATE
     Dosage: 500 MG
     Route: 065
  39. ADVAIR HFA [Suspect]
     Active Substance: FLUTICASONE PROPIONATE\SALMETEROL XINAFOATE
     Dosage: 500 MG, BID (500 MG, Q12H)
     Route: 065
  40. ADVAIR HFA [Suspect]
     Active Substance: FLUTICASONE PROPIONATE\SALMETEROL XINAFOATE
     Dosage: 500 MG, BID (500 MG, Q12H)
     Route: 065
  41. ADVAIR HFA [Suspect]
     Active Substance: FLUTICASONE PROPIONATE\SALMETEROL XINAFOATE
     Dosage: 500 MG, BID (500 MG, Q12H)
     Route: 065
  42. ADVAIR HFA [Suspect]
     Active Substance: FLUTICASONE PROPIONATE\SALMETEROL XINAFOATE
     Dosage: 500 MG, QD
     Route: 065
  43. ADVAIR HFA [Suspect]
     Active Substance: FLUTICASONE PROPIONATE\SALMETEROL XINAFOATE
     Dosage: 500 MG
     Route: 065
  44. ADVAIR HFA [Suspect]
     Active Substance: FLUTICASONE PROPIONATE\SALMETEROL XINAFOATE
     Dosage: 500 MG (500 MG, Q12H)
     Route: 065
  45. ADVAIR HFA [Suspect]
     Active Substance: FLUTICASONE PROPIONATE\SALMETEROL XINAFOATE
     Dosage: 500 MG, QD
     Route: 065
  46. ADVAIR HFA [Suspect]
     Active Substance: FLUTICASONE PROPIONATE\SALMETEROL XINAFOATE
     Dosage: 500 MG
     Route: 065
  47. ADVAIR HFA [Suspect]
     Active Substance: FLUTICASONE PROPIONATE\SALMETEROL XINAFOATE
     Dosage: 500 MG, QD
     Route: 065
  48. ADVAIR HFA [Suspect]
     Active Substance: FLUTICASONE PROPIONATE\SALMETEROL XINAFOATE
     Dosage: 500 MG, BID (500 MG, Q12H)
     Route: 065
  49. ALBUTEROL SULFATE [Suspect]
     Active Substance: ALBUTEROL SULFATE
     Indication: Product used for unknown indication
     Dosage: UNK (METERED-DOSE (AEROSOL))
     Route: 065
  50. ALBUTEROL [Suspect]
     Active Substance: ALBUTEROL
     Indication: Product used for unknown indication
     Dosage: UNK
     Route: 065
  51. NORTRIPTYLINE [Suspect]
     Active Substance: NORTRIPTYLINE
     Indication: Product used for unknown indication
     Dosage: 10 MG
     Route: 065
  52. BUPROPION [Suspect]
     Active Substance: BUPROPION
     Indication: Product used for unknown indication
     Dosage: 150 MG
     Route: 065
  53. BUPROPION [Suspect]
     Active Substance: BUPROPION
     Dosage: 150 MG
     Route: 065
  54. BUPROPION [Suspect]
     Active Substance: BUPROPION
     Dosage: 150 MG
     Route: 065
  55. CHLORMEZANONE [Suspect]
     Active Substance: CHLORMEZANONE
     Indication: Rheumatoid arthritis
     Dosage: UNK
     Route: 065
  56. CITALOPRAM HYDROBROMIDE [Suspect]
     Active Substance: CITALOPRAM HYDROBROMIDE
     Indication: Product used for unknown indication
     Dosage: UNK
     Route: 065
  57. CLONIDINE [Suspect]
     Active Substance: CLONIDINE
     Indication: Eczema
     Dosage: UNK
     Route: 065
  58. CLONIDINE HYDROCHLORIDE [Suspect]
     Active Substance: CLONIDINE HYDROCHLORIDE
     Indication: Product used for unknown indication
     Dosage: UNK
     Route: 065
  59. CODEINE [Suspect]
     Active Substance: CODEINE
     Indication: Product used for unknown indication
     Dosage: UNK
     Route: 065
  60. CRINONE [Suspect]
     Active Substance: PROGESTERONE
     Indication: Product used for unknown indication
     Dosage: UNK
     Route: 065
  61. CYCLOBENZAPRINE [Suspect]
     Active Substance: CYCLOBENZAPRINE
     Indication: Eczema
     Dosage: UNK
     Route: 065
  62. CYCLOBENZAPRINE HYDROCHLORIDE [Suspect]
     Active Substance: CYCLOBENZAPRINE HYDROCHLORIDE
     Indication: Eczema
     Dosage: UNK
     Route: 065
  63. DEMEROL [Suspect]
     Active Substance: MEPERIDINE HYDROCHLORIDE
     Indication: Product used for unknown indication
     Dosage: UNK
     Route: 065
  64. ENBREL [Suspect]
     Active Substance: ETANERCEPT
     Indication: Product used for unknown indication
     Dosage: UNK
     Route: 065
  65. FLOVENT [Suspect]
     Active Substance: FLUTICASONE PROPIONATE
     Indication: Product used for unknown indication
     Dosage: UNK
     Route: 065
  66. FLUCONAZOLE [Suspect]
     Active Substance: FLUCONAZOLE
     Indication: Product used for unknown indication
     Dosage: UNK
     Route: 065
  67. FUROSEMIDE [Suspect]
     Active Substance: FUROSEMIDE
     Indication: Product used for unknown indication
     Dosage: UNK
     Route: 065
  68. GABAPENTIN [Suspect]
     Active Substance: GABAPENTIN
     Indication: Product used for unknown indication
     Dosage: UNK
     Route: 065
  69. HUMIRA [Suspect]
     Active Substance: ADALIMUMAB
     Indication: Product used for unknown indication
     Dosage: UNK
     Route: 058
  70. HYDROMORPHONE [Suspect]
     Active Substance: HYDROMORPHONE
     Indication: Product used for unknown indication
     Dosage: UNK
     Route: 065
  71. HYDROMORPHONE HYDROCHLORIDE [Suspect]
     Active Substance: HYDROMORPHONE HYDROCHLORIDE
     Indication: Product used for unknown indication
     Dosage: UNK (TABLET (EXTENDED RELEASE))
     Route: 065
  72. KETOPROFEN [Suspect]
     Active Substance: KETOPROFEN
     Indication: Product used for unknown indication
     Dosage: UNK
     Route: 065
  73. METHYLPREDNISOLONE ACETATE [Suspect]
     Active Substance: METHYLPREDNISOLONE ACETATE
     Indication: Product used for unknown indication
     Dosage: 1 DF (1 DOSAGE FORM, QMO)
     Route: 065
  74. METHYLPREDNISOLONE ACETATE [Suspect]
     Active Substance: METHYLPREDNISOLONE ACETATE
     Dosage: 1 DF (1 DOSAGE FORM, QD)
     Route: 065
  75. METHYLPREDNISOLONE ACETATE [Suspect]
     Active Substance: METHYLPREDNISOLONE ACETATE
     Dosage: 1 DF (1 DOSAGE FORM)
     Route: 065
  76. METHYLPREDNISOLONE ACETATE [Suspect]
     Active Substance: METHYLPREDNISOLONE ACETATE
     Dosage: 1 DF (1 DOSAGE FORM)
     Route: 065
  77. METHYLPREDNISOLONE SODIUM SUCCINATE [Suspect]
     Active Substance: METHYLPREDNISOLONE SODIUM SUCCINATE
     Indication: Product used for unknown indication
     Dosage: 1 DF
     Route: 065
  78. MONTELUKAST SODIUM [Suspect]
     Active Substance: MONTELUKAST SODIUM
     Indication: Product used for unknown indication
     Dosage: UNK
     Route: 065
  79. MORPHINE SULFATE [Suspect]
     Active Substance: MORPHINE SULFATE
     Indication: Product used for unknown indication
     Dosage: UNK
     Route: 065
  80. MOXIFLOXACIN HYDROCHLORIDE [Suspect]
     Active Substance: MOXIFLOXACIN HYDROCHLORIDE\MOXIFLOXACIN HYDROCHLORIDE MONOHYDRATE
     Indication: Product used for unknown indication
     Dosage: UNK
     Route: 058
  81. NORTRIPTYLINE [Suspect]
     Active Substance: NORTRIPTYLINE
     Indication: Product used for unknown indication
     Dosage: UNK
     Route: 065
  82. NORTRIPTYLINE HYDROCHLORIDE [Suspect]
     Active Substance: NORTRIPTYLINE HYDROCHLORIDE
     Indication: Product used for unknown indication
     Dosage: 10 MG
     Route: 065
  83. ONDANSETRON [Suspect]
     Active Substance: ONDANSETRON
     Indication: Product used for unknown indication
     Dosage: UNK
     Route: 065
  84. ORENCIA [Suspect]
     Active Substance: ABATACEPT
     Indication: Product used for unknown indication
     Dosage: 1 DF, QD (1 DOSAGE FORM, QD)
     Route: 065
  85. PANTOPRAZOLE MAGNESIUM [Suspect]
     Active Substance: PANTOPRAZOLE MAGNESIUM
     Indication: Product used for unknown indication
     Dosage: UNK
     Route: 065
  86. PANTOPRAZOLE SODIUM [Suspect]
     Active Substance: PANTOPRAZOLE SODIUM
     Indication: Product used for unknown indication
     Dosage: UNK
     Route: 065
  87. HERBALS\PLANTAGO OVATA LEAF [Suspect]
     Active Substance: HERBALS\PLANTAGO OVATA LEAF
     Indication: Product used for unknown indication
     Dosage: UNK
     Route: 065
  88. PROGESTERONE [Suspect]
     Active Substance: PROGESTERONE
     Indication: Product used for unknown indication
     Dosage: UNK
     Route: 065
  89. PROGESTERONE [Suspect]
     Active Substance: PROGESTERONE
     Dosage: UNK
     Route: 030
  90. PROGESTERONE [Suspect]
     Active Substance: PROGESTERONE
     Indication: Product used for unknown indication
     Dosage: UNK
     Route: 030
  91. PROGESTERONE [Suspect]
     Active Substance: PROGESTERONE
     Indication: Product used for unknown indication
     Dosage: UNK
     Route: 065
  92. PSYLLIUM HUSK [Suspect]
     Active Substance: PSYLLIUM HUSK
     Indication: Product used for unknown indication
     Dosage: UNK
     Route: 065
  93. QUETIAPINE FUMARATE [Suspect]
     Active Substance: QUETIAPINE FUMARATE
     Indication: Product used for unknown indication
     Dosage: UNK
     Route: 065
  94. RANITIDINE HYDROCHLORIDE [Suspect]
     Active Substance: RANITIDINE HYDROCHLORIDE
     Indication: Product used for unknown indication
     Dosage: 20 MG, QD
     Route: 065
  95. REMICADE [Suspect]
     Active Substance: INFLIXIMAB
     Indication: Product used for unknown indication
     Dosage: UNK (SOLUTION FOR INTRAVENOUS)
     Route: 065
  96. RESTORIL [Suspect]
     Active Substance: TEMAZEPAM
     Indication: Product used for unknown indication
     Dosage: UNK
     Route: 065
  97. RITUXIMAB [Suspect]
     Active Substance: RITUXIMAB
     Indication: Product used for unknown indication
     Dosage: 1000 MG, QD (1 EVERY 1 DAYS)
     Route: 042
  98. ALBUTEROL [Suspect]
     Active Substance: ALBUTEROL
     Indication: Product used for unknown indication
     Dosage: UNK
     Route: 065
  99. SENNA [Suspect]
     Active Substance: SENNA LEAF\SENNOSIDES\SENNOSIDES A AND B
     Indication: Product used for unknown indication
     Dosage: UNK
     Route: 065
  100. SENNA LEAF [Suspect]
     Active Substance: SENNA LEAF
     Indication: Product used for unknown indication
     Dosage: UNK (DROPS ORAL)
     Route: 065
  101. SINGULAIR [Suspect]
     Active Substance: MONTELUKAST SODIUM
     Indication: Product used for unknown indication
     Dosage: UNK
     Route: 065
  102. PANTOPRAZOLE MAGNESIUM [Suspect]
     Active Substance: PANTOPRAZOLE MAGNESIUM
     Indication: Product used for unknown indication
     Dosage: UNK (TABLET (ENTERIC-COATED))
     Route: 065
  103. TOCILIZUMAB [Suspect]
     Active Substance: TOCILIZUMAB
     Indication: Product used for unknown indication
     Dosage: 500 MG, BID (500 MG, Q12H)
     Route: 065
  104. TYLENOL [Suspect]
     Active Substance: ACETAMINOPHEN
     Indication: Product used for unknown indication
     Dosage: UNK
     Route: 065
  105. VENLAFAXINE HYDROCHLORIDE [Suspect]
     Active Substance: VENLAFAXINE HYDROCHLORIDE
     Indication: Product used for unknown indication
     Dosage: UNK
     Route: 065
  106. VENTOLIN [Suspect]
     Active Substance: ALBUTEROL SULFATE
     Indication: Product used for unknown indication
     Dosage: UNK
     Route: 065
  107. WELLBUTRIN [Suspect]
     Active Substance: BUPROPION HYDROCHLORIDE
     Indication: Product used for unknown indication
     Dosage: 150 MG (TABLET (EXTENDED RELEASE))
     Route: 065
  108. ZOPICLONE [Suspect]
     Active Substance: ZOPICLONE
     Indication: Product used for unknown indication
     Dosage: UNK
     Route: 065
  109. DOLUTEGRAVIR SODIUM [Concomitant]
     Active Substance: DOLUTEGRAVIR SODIUM
     Indication: Product used for unknown indication
     Dosage: UNK
     Route: 065

REACTIONS (8)
  - Pain [Not Recovered/Not Resolved]
  - Infusion related reaction [Not Recovered/Not Resolved]
  - Exposure during pregnancy [Not Recovered/Not Resolved]
  - Intentional product misuse [Not Recovered/Not Resolved]
  - Off label use [Not Recovered/Not Resolved]
  - Overdose [Not Recovered/Not Resolved]
  - Prescribed overdose [Not Recovered/Not Resolved]
  - Product use issue [Not Recovered/Not Resolved]
